FAERS Safety Report 9842716 (Version 1)
Quarter: 2014Q1

REPORT INFORMATION
  Report Type: Spontaneous
  Country: US (occurrence: US)
  Receive Date: 20140124
  Receipt Date: 20140124
  Transmission Date: 20141002
  Serious: Yes (Other)
  Sender: FDA-Public Use
  Company Number: US-PFIZER INC-2014022050

PATIENT
  Age: 62 Year
  Sex: Male
  Weight: 111.11 kg

DRUGS (20)
  1. SPIRONOLACTONE [Suspect]
     Indication: CARDIAC DISORDER
     Dosage: UNK, 1X/DAY
     Route: 048
     Dates: start: 2004
  2. TRAZODONE [Concomitant]
     Dosage: UNK
  3. PAXIL [Concomitant]
     Dosage: UNK
  4. NOVOLOG [Concomitant]
     Dosage: UNK
  5. LEVEMIR [Concomitant]
     Dosage: UNK
  6. VITAMIN D [Concomitant]
     Dosage: UNK
  7. MAGNESIUM [Concomitant]
     Dosage: UNK
  8. ASPIRIN [Concomitant]
     Dosage: UNK
  9. MICARDIS HCT [Concomitant]
     Dosage: UNK
  10. FENOFIBRATE [Concomitant]
     Dosage: UNK
  11. PLAVIX [Concomitant]
     Dosage: UNK
  12. NITRO PATCH [Concomitant]
     Dosage: UNK
  13. METOLAZONE [Concomitant]
     Dosage: UNK
  14. CARVEDILOL [Concomitant]
     Dosage: UNK
  15. DIGOXIN [Concomitant]
     Dosage: UNK
  16. RANITIDINE [Concomitant]
     Dosage: UNK
  17. SIMVASTATIN [Concomitant]
     Dosage: UNK
  18. FUROSEMIDE [Concomitant]
     Dosage: UNK
  19. LEVOTHYROXINE [Concomitant]
     Dosage: UNK
  20. LOVAZA [Concomitant]
     Dosage: UNK

REACTIONS (6)
  - Diabetes mellitus [Unknown]
  - Gynaecomastia [Unknown]
  - Hormone level abnormal [Unknown]
  - Cardiac discomfort [Unknown]
  - Abdominal pain upper [Unknown]
  - Nipple pain [Unknown]
